FAERS Safety Report 8603806 (Version 3)
Quarter: 2012Q4

REPORT INFORMATION
  Report Type: 
  Country: NO (occurrence: NO)
  Receive Date: 20120607
  Receipt Date: 20120924
  Transmission Date: 20130627
  Serious: Yes (Life-Threatening, Hospitalization, Other)
  Sender: FDA-Public Use
  Company Number: NO-PFIZER INC-2012080357

PATIENT
  Age: 14 Year
  Sex: Male
  Weight: 75 kg

DRUGS (6)
  1. CELECOXIB [Suspect]
     Indication: MEDULLOBLASTOMA
     Dosage: 400 mg, 2x/day
  2. ETOPOSIDE [Suspect]
     Indication: MEDULLOBLASTOMA
     Dosage: 100 mg, 1x/day
     Route: 048
  3. THALIDOMIDE [Suspect]
     Indication: MEDULLOBLASTOMA
     Dosage: 200 mg, 1x/day
     Route: 048
  4. CYTARABINE [Suspect]
     Indication: MEDULLOBLASTOMA
     Dosage: 50 mg, cyclic, every other week then monthly
     Route: 037
  5. CYTARABINE [Suspect]
     Dosage: 50 mg, cyclic, every other month
     Route: 037
  6. PREDNISOLONE SUCCINATE [Concomitant]
     Indication: PROPHYLAXIS
     Dosage: 20 mg, UNK
     Route: 065

REACTIONS (6)
  - Febrile neutropenia [Recovered/Resolved]
  - Mucosal inflammation [Unknown]
  - Sinusitis [Unknown]
  - Fatigue [Unknown]
  - Listless [Recovered/Resolved]
  - Decreased appetite [Recovered/Resolved]
